FAERS Safety Report 4462123-0 (Version None)
Quarter: 2004Q3

REPORT INFORMATION
  Report Type: 
  Country: None (occurrence: None)
  Receive Date: 20040927
  Receipt Date: 20040927
  Transmission Date: 20050211
  Serious: No
  Sender: FDA-Public Use
  Company Number: None

PATIENT
  Age: 67 Year
  Sex: Male

DRUGS (2)
  1. LYMPHAZURIN [Suspect]
     Indication: MALIGNANT MELANOMA
     Dosage: 1-2 ML ONE TIME INTRAVENOUS
     Route: 042
  2. LYMPHAZURIN [Suspect]
     Indication: SKIN NEOPLASM EXCISION
     Dosage: 1-2 ML ONE TIME INTRAVENOUS
     Route: 042

REACTIONS (1)
  - HYPERSENSITIVITY [None]
